FAERS Safety Report 5125215-9 (Version None)
Quarter: 2006Q4

REPORT INFORMATION
  Report Type: 
  Country: None (occurrence: None)
  Receive Date: 20061006
  Receipt Date: 20060922
  Transmission Date: 20070319
  Serious: Yes (Hospitalization, Disabling)
  Sender: FDA-Public Use
  Company Number: 2006PV021746

PATIENT
  Age: 59 Year
  Sex: Female
  Weight: 72.5755 kg

DRUGS (4)
  1. BYETTA [Suspect]
     Indication: BLOOD GLUCOSE INCREASED
     Dosage: SC
     Route: 058
     Dates: end: 20060109
  2. BYETTA [Suspect]
     Indication: WEIGHT CONTROL
     Dosage: SC
     Route: 058
     Dates: end: 20060109
  3. FUROSEMIDE [Concomitant]
  4. ASPIRIN [Concomitant]

REACTIONS (9)
  - CEREBROVASCULAR ACCIDENT [None]
  - DEHYDRATION [None]
  - FALL [None]
  - GAIT DISTURBANCE [None]
  - HEMIPLEGIA [None]
  - HYPOKALAEMIA [None]
  - RENAL FAILURE [None]
  - SPEECH DISORDER [None]
  - UPPER LIMB FRACTURE [None]
